FAERS Safety Report 5529580-X (Version None)
Quarter: 2007Q4

REPORT INFORMATION
  Report Type: 
  Country: None (occurrence: None)
  Receive Date: 20071129
  Receipt Date: 20071122
  Transmission Date: 20080405
  Serious: Yes (Other)
  Sender: FDA-Public Use
  Company Number: JP-ASTRAZENECA-2007AP07502

PATIENT
  Age: 60 Year
  Sex: Female

DRUGS (1)
  1. IRESSA [Suspect]
     Indication: LUNG ADENOCARCINOMA
     Route: 048
     Dates: start: 20070901

REACTIONS (3)
  - EXCESSIVE GRANULATION TISSUE [None]
  - RASH [None]
  - STOMATITIS [None]
